FAERS Safety Report 9354185 (Version 2)
Quarter: 2013Q2

REPORT INFORMATION
  Report Type: Spontaneous
  Country: JP (occurrence: JP)
  Receive Date: 20130618
  Receipt Date: 20130626
  Transmission Date: 20140414
  Serious: Yes (Other)
  Sender: FDA-Public Use
  Company Number: JP-GLAXOSMITHKLINE-B0899713A

PATIENT
  Age: 79 Year
  Sex: Male

DRUGS (4)
  1. DERMOVATE [Suspect]
     Indication: ECZEMA
     Route: 061
  2. BETAMETHASONE BUTYRATE PROPIONATE [Suspect]
     Indication: ECZEMA
     Route: 065
  3. ALCLOMETASONE DIPROPIONATE [Suspect]
     Indication: ECZEMA
     Route: 065
  4. UNKNOWN DRUG [Concomitant]
     Route: 065

REACTIONS (3)
  - Adrenal insufficiency [Unknown]
  - Altered state of consciousness [Unknown]
  - Hypoglycaemia [Recovering/Resolving]
